FAERS Safety Report 7594135-2 (Version None)
Quarter: 2011Q3

REPORT INFORMATION
  Report Type: 
  Country: None (occurrence: None)
  Receive Date: 20110706
  Receipt Date: 20110630
  Transmission Date: 20111222
  Serious: Yes (Other)
  Sender: FDA-Public Use
  Company Number: US-PFIZER INC-2011147270

PATIENT
  Sex: Female
  Weight: 86.2 kg

DRUGS (9)
  1. LYRICA [Suspect]
     Indication: FIBROMYALGIA
     Dosage: 75 MG, 3X/DAY
     Route: 048
     Dates: start: 20080101
  2. SIMVASTATIN [Concomitant]
     Indication: BLOOD CHOLESTEROL INCREASED
     Dosage: UNK
  3. DIOVAN HCT [Concomitant]
     Indication: HYPERTENSION
     Dosage: UNK
  4. CYCLOBENZAPRINE [Concomitant]
     Indication: ARTHRITIS
     Dosage: UNK
  5. AMITRIPTYLINE [Concomitant]
     Indication: DEPRESSION
     Dosage: UNK
  6. METHADONE [Concomitant]
     Indication: BACK DISORDER
     Dosage: UNK
  7. TOPROL-XL [Concomitant]
     Indication: HYPERTENSION
     Dosage: UNK
  8. MELOXICAM [Concomitant]
     Indication: ARTHRITIS
     Dosage: UNK
  9. PLAVIX [Concomitant]
     Indication: BLOOD CHOLESTEROL INCREASED
     Dosage: UNK

REACTIONS (1)
  - LIVER FUNCTION TEST ABNORMAL [None]
